FAERS Safety Report 24869247 (Version 1)
Quarter: 2025Q1

REPORT INFORMATION
  Report Type: Spontaneous
  Country: US (occurrence: US)
  Receive Date: 20250121
  Receipt Date: 20250121
  Transmission Date: 20250409
  Serious: No
  Sender: PFIZER
  Company Number: US-PFIZER INC-PV202500008015

PATIENT
  Age: 21 Year
  Sex: Male

DRUGS (3)
  1. XELJANZ [Suspect]
     Active Substance: TOFACITINIB CITRATE
     Indication: Crohn^s disease
     Dosage: 10 MG, 2X/DAY
     Route: 048
     Dates: start: 202501
  2. XELJANZ [Suspect]
     Active Substance: TOFACITINIB CITRATE
     Indication: Diabetes mellitus
  3. XELJANZ [Suspect]
     Active Substance: TOFACITINIB CITRATE
     Indication: Enteritis

REACTIONS (2)
  - Headache [Recovered/Resolved]
  - Off label use [Unknown]
